FAERS Safety Report 8535511-0 (Version None)
Quarter: 2012Q3

REPORT INFORMATION
  Report Type: 
  Country: None (occurrence: None)
  Receive Date: 20120718
  Receipt Date: 20120718
  Transmission Date: 20120928
  Serious: Yes (Hospitalization)
  Sender: FDA-Public Use
  Company Number: None

PATIENT
  Sex: Female

DRUGS (2)
  1. HIGH BLOOD PRESSURE PILLS [Concomitant]
  2. CITALOPRAM HYDROBROMIDE [Suspect]
     Indication: DEPRESSION
     Dosage: 10 MG ONCE A DAY PO ONE TIME
     Route: 048
     Dates: start: 20120714

REACTIONS (6)
  - VOMITING [None]
  - PALPITATIONS [None]
  - DIARRHOEA [None]
  - ABDOMINAL PAIN [None]
  - CHILLS [None]
  - FEELING HOT [None]
